FAERS Safety Report 6904106-4 (Version None)
Quarter: 2010Q3

REPORT INFORMATION
  Report Type: 
  Country: None (occurrence: None)
  Receive Date: 20100804
  Receipt Date: 20090316
  Transmission Date: 20110219
  Serious: No
  Sender: FDA-Public Use
  Company Number: US-PFIZER INC-2009166182

PATIENT
  Sex: Male
  Weight: 90.2 kg

DRUGS (3)
  1. LYRICA [Suspect]
     Indication: BURNING SENSATION
     Dosage: 50 MG, UNK
     Dates: start: 20090101
  2. LYRICA [Suspect]
     Indication: PARAESTHESIA
  3. ANTIHYPERTENSIVES [Concomitant]
     Dosage: UNK

REACTIONS (1)
  - BURNING SENSATION [None]
